FAERS Safety Report 19937427 (Version 1)
Quarter: 2021Q4

REPORT INFORMATION
  Report Type: Spontaneous
  Country: CN (occurrence: CN)
  Receive Date: 20211011
  Receipt Date: 20211011
  Transmission Date: 20220303
  Serious: Yes (Hospitalization, Other)
  Sender: FDA-Public Use
  Company Number: CN-BAXTER-2021BAX027684

PATIENT
  Age: 55 Year
  Sex: Female
  Weight: 57 kg

DRUGS (7)
  1. CYCLOPHOSPHAMIDE [Suspect]
     Active Substance: CYCLOPHOSPHAMIDE
     Indication: Breast cancer
     Dosage: CYCLOPHOSPHAMIDE POWDER FOR INJECTION (ENDOXAN) 0.8G WITH 0.9% SODIUM CHLORIDE INJECTION 500ML
     Route: 041
     Dates: start: 20190417, end: 20190417
  2. CYCLOPHOSPHAMIDE [Suspect]
     Active Substance: CYCLOPHOSPHAMIDE
     Dosage: DOSE REINTRODUCE
     Route: 041
  3. CYCLOPHOSPHAMIDE [Suspect]
     Active Substance: CYCLOPHOSPHAMIDE
     Dosage: PREVIOUS CHEMEMOTHERAPY
     Route: 065
  4. SODIUM CHLORIDE [Suspect]
     Active Substance: SODIUM CHLORIDE
     Indication: Medication dilution
     Dosage: CYCLOPHOSPHAMIDE (ENDOXAN) POWDER FOR INJECTION 0.8G + 0.9% SODIUM CHLORIDE INJECTION 500ML
     Route: 041
     Dates: start: 20190417, end: 20190417
  5. SODIUM CHLORIDE [Suspect]
     Active Substance: SODIUM CHLORIDE
     Dosage: USE AS DILUENT FOR PHARMARUBICIN
     Route: 041
     Dates: start: 20190417, end: 20190417
  6. EPIRUBICIN [Suspect]
     Active Substance: EPIRUBICIN
     Indication: Breast cancer
     Dosage: DILUTED WITH 250 ML OF 0.9% SODIUM CHLORIDE INJECTION
     Route: 041
     Dates: start: 20190417, end: 20190417
  7. EPIRUBICIN [Suspect]
     Active Substance: EPIRUBICIN
     Dosage: DOSE REINTRODUCE
     Route: 041

REACTIONS (4)
  - Haematuria [Unknown]
  - Vomiting [Unknown]
  - Haematuria [Recovering/Resolving]
  - Vomiting [Recovering/Resolving]

NARRATIVE: CASE EVENT DATE: 20190417
